FAERS Safety Report 4983600-X (Version None)
Quarter: 2006Q2

REPORT INFORMATION
  Report Type: 
  Country: None (occurrence: None)
  Receive Date: 20060426
  Receipt Date: 20060419
  Transmission Date: 20061013
  Serious: Yes (Hospitalization)
  Sender: FDA-Public Use
  Company Number: JP-ROCHE-445196

PATIENT
  Age: 44 Year
  Sex: Male

DRUGS (1)
  1. ROCEPHIN [Suspect]
     Indication: TONSILLITIS
     Route: 041
     Dates: start: 20060418

REACTIONS (1)
  - SHOCK [None]
